FAERS Safety Report 23026960 (Version 1)
Quarter: 2023Q4

REPORT INFORMATION
  Report Type: Report from Study
  Country: US (occurrence: US)
  Receive Date: 20231004
  Receipt Date: 20231004
  Transmission Date: 20240110
  Serious: Yes (Hospitalization, Other)
  Sender: FDA-Public Use
  Company Number: US-Accord-382216

PATIENT

DRUGS (1)
  1. CLOZAPINE [Suspect]
     Active Substance: CLOZAPINE
     Indication: Schizoaffective disorder
     Dosage: 150 MG DAILY

REACTIONS (4)
  - Schizoaffective disorder [Unknown]
  - Drug abuse [Unknown]
  - Alcohol abuse [Unknown]
  - Condition aggravated [Unknown]
